FAERS Safety Report 20492262 (Version 2)
Quarter: 2022Q2

REPORT INFORMATION
  Report Type: Report from Study
  Country: JP (occurrence: JP)
  Receive Date: 20220218
  Receipt Date: 20220404
  Transmission Date: 20220721
  Serious: Yes (Hospitalization, Other)
  Sender: FDA-Public Use
  Company Number: JP-PFIZER INC-202101679264

PATIENT
  Age: 15 Year
  Sex: Male
  Weight: 33.8 kg

DRUGS (8)
  1. SIROLIMUS [Suspect]
     Active Substance: SIROLIMUS
     Indication: Vascular malformation
     Dosage: 2 MG, 1X/DAY
     Route: 048
     Dates: start: 20201124, end: 20211111
  2. SIROLIMUS [Suspect]
     Active Substance: SIROLIMUS
     Indication: Haemangioma
  3. SIROLIMUS [Suspect]
     Active Substance: SIROLIMUS
     Indication: Malformation venous
  4. MONTELUKAST [Concomitant]
     Active Substance: MONTELUKAST SODIUM
     Indication: Asthma
     Dosage: 10 MG, DAILY (10 MG,1 D)
     Route: 048
  5. FLUTICASONE PROPIONATE\SALMETEROL XINAFOATE [Concomitant]
     Active Substance: FLUTICASONE PROPIONATE\SALMETEROL XINAFOATE
     Indication: Asthma
     Dosage: 1 DF, 2X/DAY (1 DOSAGE FORMS,12 HR)
     Route: 055
  6. PROCATEROL HYDROCHLORIDE [Concomitant]
     Active Substance: PROCATEROL HYDROCHLORIDE
     Indication: Asthma
     Dosage: UNK
     Route: 055
  7. LEVOCETIRIZINE HYDROCHLORIDE [Concomitant]
     Active Substance: LEVOCETIRIZINE HYDROCHLORIDE
     Indication: Rhinitis
     Dosage: 5 MG, 1X/DAY
     Route: 048
     Dates: start: 20210802
  8. CALONAL [Concomitant]
     Active Substance: ACETAMINOPHEN
     Indication: Malformation venous
     Dosage: UNK
     Route: 048

REACTIONS (2)
  - Physical deconditioning [Unknown]
  - Lower gastrointestinal haemorrhage [Recovered/Resolved]

NARRATIVE: CASE EVENT DATE: 20211121
